FAERS Safety Report 19749762 (Version 1)
Quarter: 2021Q3

REPORT INFORMATION
  Report Type: Spontaneous
  Country: US (occurrence: US)
  Receive Date: 20210826
  Receipt Date: 20210826
  Transmission Date: 20211014
  Serious: No
  Sender: FDA-Public Use
  Company Number: None

PATIENT
  Age: 45 Year
  Sex: Female
  Weight: 85.5 kg

DRUGS (1)
  1. REGEN?COV [Suspect]
     Active Substance: CASIRIVIMAB\IMDEVIMAB
     Indication: SARS-COV-2 TEST POSITIVE
     Dosage: ?          OTHER FREQUENCY:ONE TIME DOSE;?
     Route: 041
     Dates: start: 20210825, end: 20210825

REACTIONS (3)
  - Infusion related reaction [None]
  - Chest discomfort [None]
  - Hot flush [None]

NARRATIVE: CASE EVENT DATE: 20210825
